FAERS Safety Report 9314025 (Version 2)
Quarter: 2013Q2

REPORT INFORMATION
  Report Type: Spontaneous
  Country: US (occurrence: US)
  Receive Date: 20130529
  Receipt Date: 20130627
  Transmission Date: 20140414
  Serious: No
  Sender: FDA-Public Use
  Company Number: US-009507513-1305USA014992

PATIENT
  Age: 61 Year
  Sex: Female
  Weight: 58.5 kg

DRUGS (3)
  1. SAPHRIS [Suspect]
     Indication: BIPOLAR I DISORDER
     Dosage: 5 MG, ONE TABLET,QD
     Route: 048
  2. SAPHRIS [Suspect]
     Indication: DEPRESSION
  3. PROZAC [Concomitant]
     Dosage: UNK

REACTIONS (5)
  - Feeling drunk [Recovered/Resolved]
  - Pollakiuria [Recovered/Resolved]
  - Muscle twitching [Recovered/Resolved]
  - Inappropriate schedule of drug administration [Unknown]
  - Anxiety [Recovered/Resolved]
